FAERS Safety Report 6461890-4 (Version None)
Quarter: 2009Q4

REPORT INFORMATION
  Report Type: 
  Country: None (occurrence: None)
  Receive Date: 20091130
  Receipt Date: 20091120
  Transmission Date: 20100525
  Serious: Yes (Other)
  Sender: FDA-Public Use
  Company Number: PHHY2009JP39872

PATIENT
  Sex: Female
  Weight: 65 kg

DRUGS (2)
  1. LAMISIL [Suspect]
     Indication: TINEA INFECTION
     Dosage: UNK
     Route: 048
     Dates: start: 20090804, end: 20090811
  2. LIPITOR [Concomitant]
     Indication: HYPERLIPIDAEMIA
     Dosage: 10 MG
     Route: 048

REACTIONS (9)
  - ALANINE AMINOTRANSFERASE INCREASED [None]
  - ASPARTATE AMINOTRANSFERASE INCREASED [None]
  - BLOOD ALKALINE PHOSPHATASE INCREASED [None]
  - BLOOD BILIRUBIN [None]
  - GAMMA-GLUTAMYLTRANSFERASE [None]
  - HEPATITIS C ANTIBODY POSITIVE [None]
  - HEPATITIS VIRAL [None]
  - LIVER DISORDER [None]
  - PANCREATIC CARCINOMA [None]
